FAERS Safety Report 9772572 (Version 1)
Quarter: 2013Q4

REPORT INFORMATION
  Report Type: Report from Study
  Country: TR (occurrence: TR)
  Receive Date: 20131219
  Receipt Date: 20131219
  Transmission Date: 20140711
  Serious: Yes (Other)
  Sender: FDA-Public Use
  Company Number: PHHY2013TR146873

PATIENT
  Age: 4 Year
  Sex: Male
  Weight: 17.2 kg

DRUGS (1)
  1. OMNITROPE [Suspect]
     Indication: GROWTH HORMONE DEFICIENCY
     Dosage: 0.6 MG, UNK
     Route: 058
     Dates: start: 20131129

REACTIONS (1)
  - Swelling face [Not Recovered/Not Resolved]
